FAERS Safety Report 7611655-2 (Version None)
Quarter: 2011Q3

REPORT INFORMATION
  Report Type: 
  Country: None (occurrence: None)
  Receive Date: 20110715
  Receipt Date: 20110705
  Transmission Date: 20111222
  Serious: Yes (Death)
  Sender: FDA-Public Use
  Company Number: BR-SANOFI-AVENTIS-2011SA043728

PATIENT
  Age: 70 Year
  Sex: Female
  Weight: 96 kg

DRUGS (5)
  1. WARFARIN SODIUM [Concomitant]
  2. DIURETICS [Concomitant]
  3. DRONEDARONE HCL [Suspect]
     Indication: ATRIAL FIBRILLATION
     Route: 048
     Dates: start: 20110425
  4. ENALAPRIL MALEATE [Concomitant]
  5. METOPROLOL TARTRATE [Concomitant]

REACTIONS (1)
  - CARDIAC DEATH [None]
